FAERS Safety Report 15842807 (Version 2)
Quarter: 2019Q2

REPORT INFORMATION
  Report Type: Spontaneous
  Country: US (occurrence: US)
  Receive Date: 20190118
  Receipt Date: 20190604
  Transmission Date: 20190711
  Serious: Yes (Hospitalization, Other)
  Sender: FDA-Public Use
  Company Number: US-PFIZER INC-2019021515

PATIENT
  Age: 33 Year
  Sex: Female
  Weight: 58 kg

DRUGS (3)
  1. LYRICA [Suspect]
     Active Substance: PREGABALIN
     Indication: NEURALGIA
  2. LYRICA [Suspect]
     Active Substance: PREGABALIN
     Indication: COMPLEX REGIONAL PAIN SYNDROME
     Dosage: 300 MG, 2X/DAY  (ONE IN THE MORNING AND ONE IN THE EVENING)
     Route: 048
     Dates: start: 201711
  3. LYRICA [Suspect]
     Active Substance: PREGABALIN
     Indication: NEUROPATHY PERIPHERAL
     Dosage: 300 MG, 2X/DAY
     Route: 048
     Dates: start: 201811

REACTIONS (11)
  - Pancreatitis [Recovering/Resolving]
  - Nausea [Unknown]
  - Blood potassium decreased [Unknown]
  - Dehydration [Unknown]
  - Vomiting [Recovered/Resolved with Sequelae]
  - Cholelithiasis [Unknown]
  - Somnolence [Unknown]
  - Dizziness [Recovered/Resolved]
  - Amnesia [Unknown]
  - Influenza [Unknown]
  - Feeling abnormal [Unknown]

NARRATIVE: CASE EVENT DATE: 20181226
